FAERS Safety Report 7571140-3 (Version None)
Quarter: 2011Q2

REPORT INFORMATION
  Report Type: 
  Country: None (occurrence: None)
  Receive Date: 20110624
  Receipt Date: 20110615
  Transmission Date: 20111010
  Serious: Yes (Death, Other)
  Sender: FDA-Public Use
  Company Number: JP-AMGEN-JPNCT2011031990

PATIENT
  Age: 66 Year
  Sex: Male
  Weight: 53 kg

DRUGS (6)
  1. FLUOROURACIL [Concomitant]
     Indication: COLORECTAL CANCER
     Route: 040
     Dates: start: 20100729
  2. FLUOROURACIL [Concomitant]
     Route: 041
     Dates: start: 20100729
  3. PANITUMUMAB [Suspect]
     Indication: COLORECTAL CANCER
     Dosage: 6 MG/KG, Q2WK
     Route: 041
     Dates: start: 20100729, end: 20100729
  4. PANITUMUMAB [Suspect]
     Dosage: 6 MG/KG, Q2WK
     Route: 041
     Dates: start: 20100902, end: 20101014
  5. LEUCOVORIN CALCIUM [Concomitant]
     Indication: COLORECTAL CANCER
     Route: 041
     Dates: start: 20100729
  6. IRINOTECAN HCL [Suspect]
     Indication: COLORECTAL CANCER
     Route: 041
     Dates: start: 20100729

REACTIONS (6)
  - DIARRHOEA [None]
  - COLORECTAL CANCER METASTATIC [None]
  - COLORECTAL CANCER [None]
  - PYREXIA [None]
  - NEOPLASM PROGRESSION [None]
  - GASTRIC ULCER PERFORATION [None]
